FAERS Safety Report 3222346 (Version 2)
Quarter: 2020Q3

REPORT INFORMATION
  Report Type: Spontaneous
  Country: US (occurrence: None)
  Receive Date: 19981228
  Receipt Date: 19990308
  Transmission Date: 20201104
  Serious: No
  Sender: FDA-Public Use
  Company Number: 9842780

PATIENT
  Age: 17 Year
  Sex: Male
  Weight: 64 kg

DRUGS (21)
  1. ALATROFLOXACIN MESYLATE. [Suspect]
     Active Substance: ALATROFLOXACIN MESYLATE
     Indication: MULTIPLE INJURIES
     Dosage: 200.00 MG TOTAL:DAILY:INTRAVENOUS
     Route: 042
     Dates: start: 19981206, end: 19981207
  2. MORPHINE [Concomitant]
     Active Substance: MORPHINE
  3. ALATROFLOXACIN MESYLATE. [Suspect]
     Active Substance: ALATROFLOXACIN MESYLATE
     Indication: SURGERY
     Dosage: 200.00 MG TOTAL:DAILY:INTRAVENOUS
     Route: 042
     Dates: start: 19981206, end: 19981207
  4. FAMOTIDINE. [Concomitant]
     Active Substance: FAMOTIDINE
  5. SODIUM CHLORIDE. [Concomitant]
     Active Substance: SODIUM CHLORIDE
  6. SUCRALFATE. [Concomitant]
     Active Substance: SUCRALFATE
  7. SILVER SULFADIAZINE. [Concomitant]
     Active Substance: SILVER SULFADIAZINE
  8. DEPAKOTE [Concomitant]
     Active Substance: DIVALPROEX SODIUM
  9. LOPERAMIDE [Concomitant]
     Active Substance: LOPERAMIDE
  10. FUROSEMIDE. [Concomitant]
     Active Substance: FUROSEMIDE
  11. LACTATED RINGERS SOLUTION [Concomitant]
     Active Substance: CALCIUM CHLORIDE\POTASSIUM CHLORIDE\SODIUM CHLORIDE\SODIUM LACTATE
  12. ACETAMINOPHEN\HYDROCODONE BITARTRATE [Concomitant]
     Active Substance: ACETAMINOPHEN\HYDROCODONE BITARTRATE
  13. MIRTAZIPINE [Concomitant]
  14. GUAIFENESIN. [Concomitant]
     Active Substance: GUAIFENESIN
  15. MIDAZOLAM HYDROCHLORIDE. [Concomitant]
     Active Substance: MIDAZOLAM HYDROCHLORIDE
  16. SODIUM BIPHOSPHATE/POTASSIUM PHOSPHATE [Concomitant]
  17. ACETAMINOPHEN. [Concomitant]
     Active Substance: ACETAMINOPHEN
  18. ALBUTEROL. [Concomitant]
     Active Substance: ALBUTEROL
  19. IPRATROPIUM [Concomitant]
     Active Substance: IPRATROPIUM
  20. CEFOROXIME [Concomitant]
  21. LORAZEPAM. [Concomitant]
     Active Substance: LORAZEPAM

REACTIONS (2)
  - Blood creatine phosphokinase increased [None]
  - Rhabdomyolysis [None]

NARRATIVE: CASE EVENT DATE: 19981206
